FAERS Safety Report 14145814 (Version 1)
Quarter: 2017Q4

REPORT INFORMATION
  Report Type: Spontaneous
  Country: US (occurrence: US)
  Receive Date: 20171031
  Receipt Date: 20171031
  Transmission Date: 20180321
  Serious: Yes (Other)
  Sender: FDA-Public Use
  Company Number: US-AKORN PHARMACEUTICALS-2017AKN01245

PATIENT
  Sex: Female
  Weight: 71.9 kg

DRUGS (5)
  1. MYORISAN [Suspect]
     Active Substance: ISOTRETINOIN
     Indication: ACNE
     Dosage: 30 MG, 1X/DAY IN AM
     Route: 048
     Dates: start: 20170901, end: 20171002
  2. FALMINA [Concomitant]
     Active Substance: ETHINYL ESTRADIOL\LEVONORGESTREL
     Dosage: UNK, 1X/DAY
  3. CLARAVIS [Suspect]
     Active Substance: ISOTRETINOIN
     Indication: ACNE
     Dosage: 30 MG, 1X/DAY IN AM
     Route: 048
     Dates: start: 20170623, end: 20171002
  4. CLARAVIS [Suspect]
     Active Substance: ISOTRETINOIN
     Indication: ACNE
     Dosage: 40 MG, 1X/DAY IN PM
     Route: 048
     Dates: start: 20170524, end: 20171002
  5. HYPERCARE [Concomitant]
     Active Substance: ALCOHOL\ALUMINUM CHLORIDE
     Dosage: UNK, AS NEEDED
     Route: 061

REACTIONS (9)
  - Lip dry [Unknown]
  - Abdominal pain [Recovered/Resolved]
  - Depression [Not Recovered/Not Resolved]
  - Mood altered [Not Recovered/Not Resolved]
  - Decreased appetite [Not Recovered/Not Resolved]
  - Decreased interest [Not Recovered/Not Resolved]
  - Acne [Not Recovered/Not Resolved]
  - Dry mouth [Unknown]
  - Dry skin [Unknown]

NARRATIVE: CASE EVENT DATE: 2017
